FAERS Safety Report 5491806-9 (Version None)
Quarter: 2007Q4

REPORT INFORMATION
  Report Type: 
  Country: None (occurrence: None)
  Receive Date: 20071022
  Receipt Date: 20071010
  Transmission Date: 20080405
  Serious: Yes (Hospitalization)
  Sender: FDA-Public Use
  Company Number: IL-BRISTOL-MYERS SQUIBB COMPANY-12895462

PATIENT
  Age: 64 Year
  Sex: Male

DRUGS (6)
  1. IFOSFAMIDE [Suspect]
     Indication: DIFFUSE LARGE B-CELL LYMPHOMA
     Dosage: 24 HOUR INFUSION ON DAY 2
     Dates: start: 20050129, end: 20050129
  2. MESNA [Suspect]
     Indication: PROPHYLAXIS
     Dosage: DAY 2
     Dates: start: 20050129, end: 20050129
  3. ETOPOSIDE [Suspect]
     Indication: DIFFUSE LARGE B-CELL LYMPHOMA
     Dosage: DAYS 1 TO 3
     Dates: start: 20050128, end: 20050130
  4. CARBOPLATIN [Suspect]
     Indication: DIFFUSE LARGE B-CELL LYMPHOMA
     Dosage: DAY 2
     Dates: start: 20050129, end: 20050129
  5. RITUXAN [Suspect]
     Indication: DIFFUSE LARGE B-CELL LYMPHOMA
     Dosage: DAY 1 (PLUS DAY -2 OF CYCLE 1)
     Dates: start: 20050126, end: 20050228
  6. LOSEC [Concomitant]

REACTIONS (3)
  - OTOTOXICITY [None]
  - PNEUMONIA STREPTOCOCCAL [None]
  - PULMONARY CAVITATION [None]
